FAERS Safety Report 22716480 (Version 2)
Quarter: 2024Q4

REPORT INFORMATION
  Report Type: Spontaneous
  Country: CA (occurrence: CA)
  Receive Date: 20230718
  Receipt Date: 20241021
  Transmission Date: 20250115
  Serious: Yes (Other)
  Sender: ALEXION PHARMACEUTICALS
  Company Number: 2023A162585

PATIENT
  Age: 65 Year
  Weight: 34 kg

DRUGS (30)
  1. ROSUVASTATIN [Suspect]
     Active Substance: ROSUVASTATIN
     Indication: Product used for unknown indication
     Dosage: FREQUENCY: UNK
  2. ROSUVASTATIN [Suspect]
     Active Substance: ROSUVASTATIN
     Dosage: FREQUENCY: UNK
  3. ROSUVASTATIN [Suspect]
     Active Substance: ROSUVASTATIN
     Dosage: FREQUENCY: UNK
  4. ROSUVASTATIN [Suspect]
     Active Substance: ROSUVASTATIN
     Dosage: FREQUENCY: UNK
  5. ROPIVACAINE HYDROCHLORIDE [Suspect]
     Active Substance: ROPIVACAINE HYDROCHLORIDE
     Dosage: FREQUENCY: UNK
  6. ROPIVACAINE HYDROCHLORIDE [Suspect]
     Active Substance: ROPIVACAINE HYDROCHLORIDE
     Dosage: FREQUENCY: UNK
  7. ASPIRIN [Suspect]
     Active Substance: ASPIRIN
     Dosage: FREQUENCY: UNK
  8. AMINOPHYLLINE [Suspect]
     Active Substance: AMINOPHYLLINE
     Dosage: FREQUENCY: UNK
  9. AMLODIPINE BESYLATE [Suspect]
     Active Substance: AMLODIPINE BESYLATE
     Dosage: FREQUENCY: UNK
  10. AMLODIPINE BESYLATE [Suspect]
     Active Substance: AMLODIPINE BESYLATE
     Dosage: FREQUENCY: UNK
  11. AMLODIPINE BESYLATE [Suspect]
     Active Substance: AMLODIPINE BESYLATE
     Dosage: FREQUENCY: UNK
  12. AMLODIPINE BESYLATE [Suspect]
     Active Substance: AMLODIPINE BESYLATE
     Dosage: FREQUENCY: UNK
  13. BECLOMETHASONE [Suspect]
     Active Substance: BECLOMETHASONE
     Dosage: FREQUENCY: UNK
  14. CALCIUM LACTATE [Suspect]
     Active Substance: CALCIUM LACTATE
     Dosage: FREQUENCY: UNK
  15. CIPROFLOXACIN [Suspect]
     Active Substance: CIPROFLOXACIN
     Dosage: FREQUENCY: UNK
  16. CLONAZEPAM [Suspect]
     Active Substance: CLONAZEPAM
  17. CLONAZEPAM [Suspect]
     Active Substance: CLONAZEPAM
  18. FLUTICASONE [Suspect]
     Active Substance: FLUTICASONE
     Dosage: FREQUENCY: UNK
  19. FOLATE SODIUM [Suspect]
     Active Substance: FOLATE SODIUM
     Dosage: FREQUENCY: UNK
  20. HYDROMORPHONE HYDROCHLORIDE [Suspect]
     Active Substance: HYDROMORPHONE HYDROCHLORIDE
     Dosage: FREQUENCY: UNK
  21. HYDROMORPHONE HYDROCHLORIDE [Suspect]
     Active Substance: HYDROMORPHONE HYDROCHLORIDE
     Dosage: FREQUENCY: UNK
  22. HYDROMORPHONE HYDROCHLORIDE [Suspect]
     Active Substance: HYDROMORPHONE HYDROCHLORIDE
     Dosage: FREQUENCY: UNK
  23. HYDROMORPHONE HYDROCHLORIDE [Suspect]
     Active Substance: HYDROMORPHONE HYDROCHLORIDE
     Dosage: FREQUENCY: UNK
  24. MOXIFLOXACIN [Suspect]
     Active Substance: MOXIFLOXACIN
     Dosage: FREQUENCY: UNK
  25. PREDNISONE [Suspect]
     Active Substance: PREDNISONE
     Dosage: FREQUENCY: UNK
  26. RISEDRONATE SODIUM [Suspect]
     Active Substance: RISEDRONATE SODIUM
     Dosage: FREQUENCY: UNK
  27. RITUXIMAB [Suspect]
     Active Substance: RITUXIMAB
     Dosage: FREQUENCY: UNK
  28. SINGULAIR [Suspect]
     Active Substance: MONTELUKAST SODIUM
     Dosage: FREQUENCY: UNK
  29. TRAMADOL HYDROCHLORIDE [Suspect]
     Active Substance: TRAMADOL HYDROCHLORIDE
     Dosage: FREQUENCY: UNK
  30. XOLAIR [Suspect]
     Active Substance: OMALIZUMAB
     Dosage: FREQUENCY: UNK

REACTIONS (7)
  - Asthma [Unknown]
  - Drug hypersensitivity [Unknown]
  - Dyspnoea [Unknown]
  - Oedema [Unknown]
  - Pneumonia [Unknown]
  - Vomiting [Unknown]
  - Wheezing [Unknown]
